FAERS Safety Report 10180043 (Version 1)
Quarter: 2014Q2

REPORT INFORMATION
  Report Type: Spontaneous
  Country: US (occurrence: US)
  Receive Date: 20140519
  Receipt Date: 20140519
  Transmission Date: 20141212
  Serious: No
  Sender: FDA-Public Use
  Company Number: US-AMGEN INC.-USASP2013073998

PATIENT
  Age: 33 Year
  Sex: Female

DRUGS (6)
  1. PROLIA [Suspect]
     Indication: PRODUCT USED FOR UNKNOWN INDICATION
     Route: 065
  2. HUMIRA [Concomitant]
  3. METHOTREXATE [Concomitant]
  4. SYNTHROID [Concomitant]
  5. VITAMIN D                          /00107901/ [Concomitant]
  6. INFLUENZA VACCINE [Concomitant]

REACTIONS (1)
  - Accidental exposure to product [Unknown]
